FAERS Safety Report 20199194 (Version 1)
Quarter: 2021Q4

REPORT INFORMATION
  Report Type: Spontaneous
  Country: CN (occurrence: None)
  Receive Date: 20211217
  Receipt Date: 20211217
  Transmission Date: 20220303
  Serious: Yes (Other)
  Sender: FDA-Public Use
  Company Number: 2021A868640

PATIENT
  Age: 32 Year
  Sex: Female

DRUGS (1)
  1. BUDESONIDE [Suspect]
     Active Substance: BUDESONIDE
     Indication: Subglottic laryngitis
     Route: 065
     Dates: start: 20210922, end: 20210925

REACTIONS (1)
  - Paralysis [Recovering/Resolving]

NARRATIVE: CASE EVENT DATE: 20210922
